FAERS Safety Report 9024932 (Version 1)
Quarter: 2012Q4

REPORT INFORMATION
  Report Type: Spontaneous
  Country: US (occurrence: None)
  Receive Date: 20121231
  Receipt Date: 20121231
  Transmission Date: 20130627
  Serious: Yes (Hospitalization)
  Sender: FDA-Public Use
  Company Number: ACO_33062_2012

PATIENT
  Age: 75 Year
  Sex: Female
  Weight: 50.8 kg

DRUGS (7)
  1. AMPYRA (DALFAMPRIDINE) TABLET, 10MG [Suspect]
     Indication: MS
     Route: 048
     Dates: end: 20120320
  2. ALENDRONATE (ALENDRONATE SODIUM) [Concomitant]
  3. GABAPENTIN (GABAPENTIN) [Concomitant]
  4. LEVOTHYROXINE (LEVOTHYROXINE) [Concomitant]
  5. MULTIVITAMIN (VITAMINS NOS) [Concomitant]
  6. PRILOSEC (OMEPRAZOLE MAGNESIUM) [Concomitant]
  7. MAGNESIUM (MAGNESIUM) [Concomitant]

REACTIONS (4)
  - Confusional state [None]
  - Blood potassium decreased [None]
  - Malaise [None]
  - Medication error [None]
